FAERS Safety Report 20959328 (Version 3)
Quarter: 2022Q3

REPORT INFORMATION
  Report Type: Report from Study
  Country: US (occurrence: US)
  Receive Date: 20220614
  Receipt Date: 20220902
  Transmission Date: 20221027
  Serious: Yes (Death, Hospitalization, Other)
  Sender: FDA-Public Use
  Company Number: US-TAKEDA-2022TUS039558

PATIENT
  Sex: Female
  Weight: 64 kg

DRUGS (3)
  1. MARIBAVIR [Suspect]
     Active Substance: MARIBAVIR
     Indication: Cytomegalovirus infection
     Dosage: 2 DOSAGE FORM, BID
     Route: 048
     Dates: start: 20220525
  2. MARIBAVIR [Suspect]
     Active Substance: MARIBAVIR
     Dosage: 2 MILLIGRAM, BID
     Route: 048
     Dates: start: 20220522
  3. MARIBAVIR [Suspect]
     Active Substance: MARIBAVIR
     Dosage: 400 MILLIGRAM, BID
     Route: 048
     Dates: start: 20220525

REACTIONS (3)
  - Death [Fatal]
  - Pneumonia [Unknown]
  - Product availability issue [Unknown]
